FAERS Safety Report 7940175-0 (Version None)
Quarter: 2011Q4

REPORT INFORMATION
  Report Type: 
  Country: None (occurrence: None)
  Receive Date: 20111125
  Receipt Date: 20111115
  Transmission Date: 20120403
  Serious: Yes (Hospitalization)
  Sender: FDA-Public Use
  Company Number: PHHY2011CH101552

PATIENT
  Age: 41 Year
  Sex: Female

DRUGS (4)
  1. CITALOPRAM HYDROBROMIDE [Suspect]
     Indication: AFFECTIVE DISORDER
     Dosage: 50 MG, QD
     Route: 048
     Dates: start: 20110901, end: 20111018
  2. LORAZEPAM [Concomitant]
     Indication: SLEEP DISORDER
     Dosage: 1 MG, PRN (AT NIGHT)
     Dates: start: 20110901
  3. MIRTAZAPINE [Concomitant]
     Dosage: UNK UKN, UNK
  4. OPIPRAMOL [Suspect]
     Indication: DEPRESSION
     Dosage: 20 MG, QD
     Route: 048
     Dates: start: 20110901, end: 20111018

REACTIONS (10)
  - URINE COLOUR ABNORMAL [None]
  - CHILLS [None]
  - HYPERBILIRUBINAEMIA [None]
  - ALANINE AMINOTRANSFERASE INCREASED [None]
  - GAMMA-GLUTAMYLTRANSFERASE INCREASED [None]
  - HEPATOCELLULAR INJURY [None]
  - PYREXIA [None]
  - FAECES PALE [None]
  - SPLENOMEGALY [None]
  - ASPARTATE AMINOTRANSFERASE INCREASED [None]
